FAERS Safety Report 19903404 (Version 1)
Quarter: 2021Q4

REPORT INFORMATION
  Report Type: Other
  Country: LB (occurrence: LB)
  Receive Date: 20211001
  Receipt Date: 20211001
  Transmission Date: 20220303
  Serious: Yes (Other)
  Sender: FDA-Public Use
  Company Number: LB-002147023-NVSC2021LB196822

PATIENT
  Age: 74 Year
  Sex: Female

DRUGS (7)
  1. LUCENTIS [Suspect]
     Active Substance: RANIBIZUMAB
     Indication: Diabetic retinal oedema
     Dosage: 10 MG/ML
     Route: 031
     Dates: start: 20191219
  2. LUCENTIS [Suspect]
     Active Substance: RANIBIZUMAB
     Dosage: 10 MG/ML
     Route: 031
     Dates: start: 20210318
  3. LUCENTIS [Suspect]
     Active Substance: RANIBIZUMAB
     Dosage: 10 MG/ML
     Route: 031
     Dates: start: 20201015, end: 20210317
  4. LUCENTIS [Suspect]
     Active Substance: RANIBIZUMAB
     Route: 031
     Dates: start: 20201127
  5. CRESTOR [Concomitant]
     Active Substance: ROSUVASTATIN CALCIUM
     Indication: Product used for unknown indication
     Route: 065
  6. METFORMIN HYDROCHLORIDE\VILDAGLIPTIN [Concomitant]
     Active Substance: METFORMIN HYDROCHLORIDE\VILDAGLIPTIN
     Indication: Product used for unknown indication
     Route: 065
  7. AMARYL [Concomitant]
     Active Substance: GLIMEPIRIDE
     Indication: Product used for unknown indication
     Route: 065

REACTIONS (4)
  - Uveitis [Recovered/Resolved]
  - Blindness [Not Recovered/Not Resolved]
  - Headache [Unknown]
  - Eye pain [Unknown]

NARRATIVE: CASE EVENT DATE: 20210317
